FAERS Safety Report 10261424 (Version 2)
Quarter: 2014Q3

REPORT INFORMATION
  Report Type: Spontaneous
  Country: US (occurrence: US)
  Receive Date: 20140626
  Receipt Date: 20140729
  Transmission Date: 20150326
  Serious: Yes (Hospitalization)
  Sender: FDA-Public Use
  Company Number: 2014SP001944

PATIENT
  Age: 54 Year
  Sex: Male
  Weight: 90 kg

DRUGS (4)
  1. CITALOPRAM [Concomitant]
     Active Substance: CITALOPRAM HYDROBROMIDE
     Route: 048
  2. LATUDA [Suspect]
     Active Substance: LURASIDONE HYDROCHLORIDE
     Indication: SCHIZOPHRENIA
     Route: 048
  3. ZYPREXA [Concomitant]
     Active Substance: OLANZAPINE
     Route: 048
  4. LEVOTHYROXINE [Concomitant]
     Active Substance: LEVOTHYROXINE
     Indication: HYPOTHYROIDISM

REACTIONS (12)
  - Hypopnoea [Recovering/Resolving]
  - Heart rate abnormal [Recovering/Resolving]
  - Blood thyroid stimulating hormone increased [Unknown]
  - Bradycardia [Unknown]
  - Anxiety [Recovering/Resolving]
  - Drug ineffective [None]
  - Middle insomnia [Recovering/Resolving]
  - Hallucination [Not Recovered/Not Resolved]
  - Drug administration error [None]
  - Dyspnoea [Recovering/Resolving]
  - Delusion [Not Recovered/Not Resolved]
  - Schizophrenia [Not Recovered/Not Resolved]
